FAERS Safety Report 12131536 (Version 1)
Quarter: 2016Q1

REPORT INFORMATION
  Report Type: Spontaneous
  Country: US (occurrence: US)
  Receive Date: 20160301
  Receipt Date: 20160301
  Transmission Date: 20160526
  Serious: No
  Sender: FDA-Public Use
  Company Number: US-JNJFOC-20160204994

PATIENT
  Sex: Female

DRUGS (1)
  1. SIMPONI ARIA [Suspect]
     Active Substance: GOLIMUMAB
     Indication: RHEUMATOID ARTHRITIS
     Dosage: HAS RECEIVED 3 INDUCTION DOSES
     Route: 042
     Dates: start: 2015

REACTIONS (1)
  - Tinnitus [Unknown]

NARRATIVE: CASE EVENT DATE: 201601
